FAERS Safety Report 8238776-8 (Version None)
Quarter: 2012Q1

REPORT INFORMATION
  Report Type: 
  Country: None (occurrence: None)
  Receive Date: 20120327
  Receipt Date: 20120316
  Transmission Date: 20120608
  Serious: Yes (Hospitalization, Other)
  Sender: FDA-Public Use
  Company Number: US-ELI_LILLY_AND_COMPANY-US201108001140

PATIENT
  Sex: Female
  Weight: 47 kg

DRUGS (29)
  1. FORTEO [Suspect]
     Dosage: 20 UG, QD
     Route: 058
  2. FORTEO [Suspect]
     Dosage: 20 UG, QD
     Route: 058
  3. FORTEO [Suspect]
     Dosage: 20 UG, QD
     Route: 058
  4. FORTEO [Suspect]
     Dosage: 20 UG, QD
     Route: 058
  5. LIPITOR [Concomitant]
     Indication: BLOOD CHOLESTEROL
     Dosage: 40 MG, QD
  6. AMBIEN [Concomitant]
     Indication: INSOMNIA
     Dosage: 5 MG, PRN
  7. FORTEO [Suspect]
     Indication: OSTEOPOROSIS
     Dosage: 20 UG, QD
     Route: 058
     Dates: end: 20110717
  8. CYMBALTA [Concomitant]
     Dosage: 30 MG, QD
  9. KEPPRA [Concomitant]
     Indication: CONVULSION
     Dosage: 1000 MG, BID
  10. SAVELLA [Concomitant]
  11. FORTEO [Suspect]
     Dosage: 20 UG, QD
     Route: 058
  12. FORTEO [Suspect]
     Dosage: 20 UG, QD
     Route: 058
  13. COPAXONE [Concomitant]
     Indication: MULTIPLE SCLEROSIS
     Dosage: 20 MG, QD
  14. FORTEO [Suspect]
     Dosage: 20 UG, QD
     Route: 058
  15. LEVOTHYROXINE SODIUM [Concomitant]
     Indication: THYROID DISORDER
     Dosage: UNK UNK, QD
  16. XANAX [Concomitant]
     Indication: ANXIETY
     Dosage: 1 MG, 4 TIMES DAILY
  17. POTASSIUM [Concomitant]
     Dosage: 40 MG, BID
  18. FORTEO [Suspect]
     Dosage: 20 UG, QD
     Route: 058
  19. SYNTHROID [Concomitant]
     Indication: THYROID DISORDER
     Dosage: 0.05 MG, QD
  20. ASPIRIN [Concomitant]
     Dosage: UNK, QD
  21. ZOLPIDEM [Concomitant]
     Indication: SLEEP DISORDER
     Dosage: 5 MG, PRN
  22. CYMBALTA [Concomitant]
     Indication: DEPRESSION
     Dosage: 60 MG, QD
  23. METHADONE HCL [Concomitant]
     Indication: PAIN
     Dosage: 20 MG, TID
  24. FORTEO [Suspect]
     Dosage: 20 UG, QD
     Route: 058
  25. HYDROMORPHONE HYDROCHLORIDE [Concomitant]
     Indication: PAIN
  26. LYRICA [Concomitant]
     Indication: PAIN
     Dosage: UNK, BID
  27. VITAMIN D [Concomitant]
     Dosage: 50000 IU, WEEKLY (1/W)
  28. ASPIRIN [Concomitant]
     Dosage: 81 MG, QD
  29. MULTI-VITAMINS [Concomitant]

REACTIONS (20)
  - MULTIPLE SCLEROSIS RELAPSE [None]
  - SLEEP DISORDER [None]
  - DECREASED APPETITE [None]
  - CONTUSION [None]
  - DYSKINESIA [None]
  - VISUAL IMPAIRMENT [None]
  - JAW DISORDER [None]
  - ASTHENIA [None]
  - LOSS OF CONSCIOUSNESS [None]
  - FATIGUE [None]
  - CYSTITIS [None]
  - DRUG DOSE OMISSION [None]
  - DEHYDRATION [None]
  - APHONIA [None]
  - MEMORY IMPAIRMENT [None]
  - NAUSEA [None]
  - CONVULSION [None]
  - DYSPNOEA [None]
  - MALAISE [None]
  - CONFUSIONAL STATE [None]
